FAERS Safety Report 23781784 (Version 1)
Quarter: 2024Q2

REPORT INFORMATION
  Report Type: Spontaneous
  Country: NL (occurrence: NL)
  Receive Date: 20240425
  Receipt Date: 20240425
  Transmission Date: 20240717
  Serious: Yes (Death)
  Sender: FDA-Public Use
  Company Number: None

PATIENT
  Age: 77 Year
  Sex: Male

DRUGS (6)
  1. HALDOL [Suspect]
     Active Substance: HALOPERIDOL
     Indication: Aggression
     Dosage: 2X PER DAG 1.5MG
     Route: 065
     Dates: start: 20240125, end: 20240328
  2. NEBIVOLOL [Concomitant]
     Active Substance: NEBIVOLOL
     Dosage: TABLET, 2,5 MG (MILLIGRAM)
  3. ENALAPRIL [Concomitant]
     Active Substance: ENALAPRIL
     Dosage: TABLET, 20 MG (MILLIGRAM)
  4. OXAZEPAM [Concomitant]
     Active Substance: OXAZEPAM
     Dosage: TABLET, 10 MG (MILLIGRAM)
  5. FENTANYL [Concomitant]
     Active Substance: FENTANYL\FENTANYL CITRATE
     Dosage: PLEISTER, 25 UG (MICROGRAM) PER UUR
  6. ATORVASTATIN [Concomitant]
     Active Substance: ATORVASTATIN
     Dosage: TABLET, 10 MG (MILLIGRAM)

REACTIONS (1)
  - Neuroleptic malignant syndrome [Fatal]
